FAERS Safety Report 11672712 (Version 1)
Quarter: 2015Q4

REPORT INFORMATION
  Report Type: Spontaneous
  Country: US (occurrence: None)
  Receive Date: 20151027
  Receipt Date: 20151027
  Transmission Date: 20160304
  Serious: Yes (Life-Threatening)
  Sender: FDA-Public Use
  Company Number: None

PATIENT
  Age: 65 Year
  Sex: Male
  Weight: 99.79 kg

DRUGS (4)
  1. DILTIAEM ER CAP [Concomitant]
  2. WARFARIN SODIUM. [Concomitant]
     Active Substance: WARFARIN SODIUM
  3. SYNTHROID TAB [Concomitant]
  4. PRADAXA [Suspect]
     Active Substance: DABIGATRAN ETEXILATE MESYLATE
     Indication: HEART RATE DECREASED
     Route: 048
     Dates: start: 20140827, end: 20140828

REACTIONS (1)
  - Rash generalised [None]

NARRATIVE: CASE EVENT DATE: 20140827
